FAERS Safety Report 5120458-2 (Version None)
Quarter: 2006Q4

REPORT INFORMATION
  Report Type: 
  Country: None (occurrence: None)
  Receive Date: 20061004
  Receipt Date: 20060928
  Transmission Date: 20070319
  Serious: Yes (Other)
  Sender: FDA-Public Use
  Company Number: 2006AC01786

PATIENT
  Age: 673 Month
  Sex: Male

DRUGS (4)
  1. CRESTOR [Suspect]
     Indication: HYPERCHOLESTEROLAEMIA
     Route: 048
     Dates: start: 20050101, end: 20060923
  2. EZETIMIBE [Concomitant]
  3. ASPIRIN [Concomitant]
  4. SELOKEEN [Concomitant]

REACTIONS (3)
  - ILL-DEFINED DISORDER [None]
  - SPEECH DISORDER [None]
  - TONGUE DISORDER [None]
